FAERS Safety Report 4961706-9 (Version None)
Quarter: 2006Q2

REPORT INFORMATION
  Report Type: 
  Country: None (occurrence: None)
  Receive Date: 20060404
  Receipt Date: 20060317
  Transmission Date: 20061013
  Serious: Yes (Other)
  Sender: FDA-Public Use
  Company Number: PHBS2006JP04237

PATIENT
  Age: 85 Year
  Sex: Male

DRUGS (3)
  1. ZADITEN [Suspect]
     Dosage: 1 MG, UNK
     Route: 048
     Dates: start: 20060316
  2. SELBEX [Concomitant]
     Route: 048
  3. LENDORMIN [Concomitant]
     Route: 048

REACTIONS (1)
  - CONVULSION [None]
